FAERS Safety Report 8812186 (Version 1)
Quarter: 2012Q4

REPORT INFORMATION
  Report Type: 
  Country: DE (occurrence: DE)
  Receive Date: 20120927
  Receipt Date: 20120927
  Transmission Date: 20130627
  Serious: Yes (Death, Hospitalization)
  Sender: FDA-Public Use
  Company Number: DE-ELI_LILLY_AND_COMPANY-DE201209004710

PATIENT
  Sex: Male

DRUGS (1)
  1. FORSTEO [Suspect]
     Indication: OSTEOPOROSIS
     Dosage: UNK, qd
     Route: 058
     Dates: start: 20120321

REACTIONS (5)
  - Leukaemia [Fatal]
  - Multi-organ failure [Fatal]
  - Fatigue [Unknown]
  - Weight decreased [Unknown]
  - Dyspnoea [Unknown]
